FAERS Safety Report 4325811-2 (Version None)
Quarter: 2004Q1

REPORT INFORMATION
  Report Type: 
  Country: None (occurrence: None)
  Receive Date: 20040329
  Receipt Date: 20040308
  Transmission Date: 20041129
  Serious: Yes (Life-Threatening, Hospitalization)
  Sender: FDA-Public Use
  Company Number: DE-ROCHE-360866

PATIENT
  Age: 50 Year
  Sex: Female
  Weight: 70 kg

DRUGS (9)
  1. TAMIFLU [Suspect]
     Indication: INFLUENZA
     Route: 048
     Dates: start: 20040210
  2. NOVAMINSULFON [Suspect]
     Indication: INFLUENZA
     Route: 048
     Dates: start: 20040210
  3. PREDNISOLONE [Concomitant]
     Dosage: REGIMEN REPORTED 1-0-1 TO BE TAPERED OFF.
  4. PANTOZOL [Concomitant]
     Dosage: DOSE REPORTED AS 40. REGIMEN REPORTED AS 1-0-0
  5. THEOPHYLLINE [Concomitant]
     Dosage: REGIMEN REPORTED AS 1-0-1
  6. AMOXICILLIN AND CLAVULANATE POTASSIUM [Concomitant]
     Dosage: DOSE REPORTED AS 500. REGIMEN REPORTED AS 1-1-1.
     Dates: end: 20040218
  7. ACETYLCYSTEINE [Concomitant]
     Dosage: DOSE REPORTED AS 800. REGIMEN REPORTED AS 1-0-0
  8. BERODUAL [Concomitant]
     Dosage: REGIMEN REPORTED 2-2-2 PUFFS
  9. DEQUALINIUM CHLORIDE [Concomitant]
     Dosage: REGIMEN REPORTED AS 0-0-1
     Dates: end: 20040218

REACTIONS (11)
  - ANAPHYLACTIC REACTION [None]
  - CARDIO-RESPIRATORY ARREST [None]
  - CARDIOMEGALY [None]
  - CHRONIC OBSTRUCTIVE AIRWAYS DISEASE EXACERBATED [None]
  - CYANOSIS [None]
  - HEART RATE INCREASED [None]
  - LYMPHADENOPATHY [None]
  - MYOCARDIAL INFARCTION [None]
  - PYREXIA [None]
  - REFUSAL OF TREATMENT BY PATIENT [None]
  - SYNCOPE [None]
